FAERS Safety Report 7686652-1 (Version None)
Quarter: 2011Q3

REPORT INFORMATION
  Report Type: 
  Country: None (occurrence: None)
  Receive Date: 20110816
  Receipt Date: 20110816
  Transmission Date: 20111222
  Serious: No
  Sender: FDA-Public Use
  Company Number: None

PATIENT
  Age: 62 Year
  Sex: Female
  Weight: 83.914 kg

DRUGS (1)
  1. AZITHROMYCIN [Suspect]
     Indication: COUGH
     Dates: start: 20110710, end: 20110712

REACTIONS (13)
  - DIZZINESS [None]
  - TINNITUS [None]
  - FLATULENCE [None]
  - READING DISORDER [None]
  - VISION BLURRED [None]
  - ALOPECIA [None]
  - GASTROINTESTINAL SOUNDS ABNORMAL [None]
  - HYPERSENSITIVITY [None]
  - ABDOMINAL DISTENSION [None]
  - GASTROOESOPHAGEAL REFLUX DISEASE [None]
  - VERTIGO [None]
  - DYSGEUSIA [None]
  - ANXIETY [None]
